FAERS Safety Report 12556018 (Version 2)
Quarter: 2016Q4

REPORT INFORMATION
  Report Type: Report from Study
  Country: DE (occurrence: DE)
  Receive Date: 20160714
  Receipt Date: 20161110
  Transmission Date: 20170207
  Serious: Yes (Hospitalization)
  Sender: FDA-Public Use
  Company Number: DE-ROCHE-1794607

PATIENT
  Age: 52 Year
  Sex: Female

DRUGS (5)
  1. ASPIRIN. [Concomitant]
     Active Substance: ASPIRIN
  2. TOCILIZUMAB [Suspect]
     Active Substance: TOCILIZUMAB
     Indication: RHEUMATOID ARTHRITIS
     Route: 058
  3. METRONIDAZOL [Concomitant]
     Active Substance: METRONIDAZOLE
  4. PANTOZOL [Concomitant]
     Active Substance: PANTOPRAZOLE SODIUM
  5. PREDNISOLON [Concomitant]
     Active Substance: PREDNISOLONE

REACTIONS (2)
  - Muscle strain [Recovered/Resolved]
  - Diverticulum intestinal [Unknown]

NARRATIVE: CASE EVENT DATE: 20160101
